FAERS Safety Report 10620332 (Version 2)
Quarter: 2014Q4

REPORT INFORMATION
  Report Type: Spontaneous
  Country: US (occurrence: US)
  Receive Date: 20141202
  Receipt Date: 20141216
  Transmission Date: 20150529
  Serious: Yes (Hospitalization)
  Sender: FDA-Public Use
  Company Number: US-BAYER-2014-174848

PATIENT
  Age: 55 Year
  Sex: Female
  Weight: 62.13 kg

DRUGS (11)
  1. BAYER CHEWABLE LOW DOSE ASPIRIN ORANGE FLAVORED [Suspect]
     Active Substance: ASPIRIN
     Indication: STENT PLACEMENT
     Dosage: 1 UNK, UNK
     Route: 048
     Dates: start: 201403
  2. NORTRIPTYLINE [Concomitant]
     Active Substance: NORTRIPTYLINE
  3. MULTIVITAMIN [Concomitant]
     Active Substance: VITAMINS
  4. ZYRTEC [Concomitant]
     Active Substance: CETIRIZINE HYDROCHLORIDE
  5. ATENOLOL. [Concomitant]
     Active Substance: ATENOLOL
  6. BAYER CHEWABLE LOW DOSE ASPIRIN ORANGE FLAVORED [Suspect]
     Active Substance: ASPIRIN
     Indication: STENT PLACEMENT
     Dosage: UNK
     Route: 048
     Dates: end: 201403
  7. PLAVIX [Suspect]
     Active Substance: CLOPIDOGREL BISULFATE
  8. GUAIFENESIN. [Concomitant]
     Active Substance: GUAIFENESIN
  9. ZOCOR [Concomitant]
     Active Substance: SIMVASTATIN
  10. CALCIUM [Concomitant]
     Active Substance: CALCIUM
  11. BAYER GENUINE ASPIRIN [Suspect]
     Active Substance: ASPIRIN
     Indication: STENT PLACEMENT
     Dosage: UNK
     Dates: start: 201403

REACTIONS (9)
  - Haematemesis [Recovered/Resolved]
  - Arteriovenous fistula [Unknown]
  - Gastrointestinal haemorrhage [Recovered/Resolved]
  - Haemorrhage [Recovered/Resolved]
  - Rectal haemorrhage [Recovered/Resolved]
  - Diarrhoea [Recovered/Resolved]
  - Off label use [Unknown]
  - Nausea [Recovered/Resolved]
  - Vascular pseudoaneurysm [Unknown]

NARRATIVE: CASE EVENT DATE: 2014
